FAERS Safety Report 26023317 (Version 3)
Quarter: 2025Q4

REPORT INFORMATION
  Report Type: Spontaneous
  Country: JP (occurrence: JP)
  Receive Date: 20251110
  Receipt Date: 20251225
  Transmission Date: 20260118
  Serious: Yes (Death, Other)
  Sender: TAKEDA
  Company Number: JP-TAKEDA-2025TJP011393

PATIENT
  Age: 8 Decade
  Sex: Male

DRUGS (2)
  1. FRUZAQLA [Suspect]
     Active Substance: FRUQUINTINIB
     Indication: Colon cancer recurrent
     Dosage: 5 MILLIGRAM
  2. PEMBROLIZUMAB [Suspect]
     Active Substance: PEMBROLIZUMAB
     Indication: Colon cancer
     Dosage: UNK

REACTIONS (2)
  - Colon cancer recurrent [Fatal]
  - Immune-mediated hepatic disorder [Not Recovered/Not Resolved]

NARRATIVE: CASE EVENT DATE: 20251105
